FAERS Safety Report 9851765 (Version 1)
Quarter: 2014Q1

REPORT INFORMATION
  Report Type: Spontaneous
  Country: US (occurrence: US)
  Receive Date: 20140129
  Receipt Date: 20140129
  Transmission Date: 20141002
  Serious: Yes (Disabling, Other)
  Sender: FDA-Public Use
  Company Number: US-SUN PHARMACEUTICAL INDUSTRIES LTD-2014SUN00139

PATIENT
  Age: 77 Year
  Sex: Male
  Weight: 102.4 kg

DRUGS (3)
  1. CEPHALEXIN CAPSULES USP 500MG [Suspect]
     Indication: RASH
     Dosage: 4 DF, DAILY
     Route: 048
     Dates: start: 20131129, end: 20131209
  2. CRESTOR [Suspect]
     Indication: PRODUCT USED FOR UNKNOWN INDICATION
     Route: 065
  3. RAMIPRIL [Concomitant]

REACTIONS (2)
  - Polymyalgia rheumatica [Recovering/Resolving]
  - Psoriasis [Recovering/Resolving]
